FAERS Safety Report 13168102 (Version 9)
Quarter: 2018Q2

REPORT INFORMATION
  Report Type: Spontaneous
  Country: US (occurrence: US)
  Receive Date: 20170131
  Receipt Date: 20180406
  Transmission Date: 20180711
  Serious: Yes (Other)
  Sender: FDA-Public Use
  Company Number: US-TEVA-727605ACC

PATIENT
  Age: 54 Year
  Sex: Female

DRUGS (27)
  1. MODAFINIL. [Concomitant]
     Active Substance: MODAFINIL
  2. METHYLPHENIDATE. [Concomitant]
     Active Substance: METHYLPHENIDATE
  3. CHLORHEX [Concomitant]
  4. TIZANIDINE. [Concomitant]
     Active Substance: TIZANIDINE
  5. PREDNISONE. [Concomitant]
     Active Substance: PREDNISONE
  6. BACLOFEN. [Concomitant]
     Active Substance: BACLOFEN
  7. IBUPROFEN. [Concomitant]
     Active Substance: IBUPROFEN
  8. LIDODERM [Concomitant]
     Active Substance: LIDOCAINE
  9. SMZ/TMP [Concomitant]
     Active Substance: SULFAMETHOXAZOLE\TRIMETHOPRIM
  10. OMEPRAZOLE. [Concomitant]
     Active Substance: OMEPRAZOLE
  11. IPRATROPIUM [Concomitant]
     Active Substance: IPRATROPIUM
  12. SELENIUM SULFATE [Concomitant]
     Route: 065
  13. MECLIZINE [Concomitant]
     Active Substance: MECLIZINE HYDROCHLORIDE
  14. SERTRALINE [Concomitant]
     Active Substance: SERTRALINE HYDROCHLORIDE
  15. OXYCODONE/APAP [Concomitant]
     Active Substance: ACETAMINOPHEN\OXYCODONE HYDROCHLORIDE
     Dosage: OXYCODONE/APAP : 5-325MG
  16. AMITRIPTYLINE [Concomitant]
     Active Substance: AMITRIPTYLINE
  17. COPAXONE [Suspect]
     Active Substance: GLATIRAMER ACETATE
     Indication: MULTIPLE SCLEROSIS
     Dosage: PREFILLED SYRINGE, AS DIRECTED
     Route: 058
     Dates: start: 20150309
  18. AMPYRA [Concomitant]
     Active Substance: DALFAMPRIDINE
  19. GABAPENTIN. [Concomitant]
     Active Substance: GABAPENTIN
  20. VITAMIN D [Concomitant]
     Active Substance: CHOLECALCIFEROL
     Dosage: 50000 UNIT
  21. LINZESS [Concomitant]
     Active Substance: LINACLOTIDE
  22. DICOFEN POTASSIUM [Concomitant]
  23. NAPROXEN. [Concomitant]
     Active Substance: NAPROXEN
  24. TRAMADOL HYDROCHLORIDE. [Concomitant]
     Active Substance: TRAMADOL HYDROCHLORIDE
  25. SKELAXIN [Concomitant]
     Active Substance: METAXALONE
  26. MOMETASONE [Concomitant]
     Active Substance: MOMETASONE
  27. AMLODIPINE [Concomitant]
     Active Substance: AMLODIPINE BESYLATE

REACTIONS (10)
  - Muscular weakness [Unknown]
  - Walking aid user [Unknown]
  - Decreased interest [Unknown]
  - Insomnia [Recovered/Resolved]
  - Fatigue [Recovered/Resolved]
  - Joint swelling [Unknown]
  - Dizziness [Recovered/Resolved]
  - Gait disturbance [Unknown]
  - Anxiety [Unknown]
  - Drug dose omission [Unknown]

NARRATIVE: CASE EVENT DATE: 20171013
